FAERS Safety Report 17364801 (Version 1)
Quarter: 2020Q1

REPORT INFORMATION
  Report Type: Spontaneous
  Country: US (occurrence: US)
  Receive Date: 20200204
  Receipt Date: 20200204
  Transmission Date: 20200409
  Serious: Yes (Other)
  Sender: FDA-Public Use
  Company Number: US-AMGEN-USASP2020016805

PATIENT
  Sex: Male

DRUGS (15)
  1. TRULICITY [Concomitant]
     Active Substance: DULAGLUTIDE
     Dosage: 1.5 MG/0.5 ML
  2. GEMFIBROZIL. [Concomitant]
     Active Substance: GEMFIBROZIL
     Dosage: 600 MILLIGRAM
  3. LEVOTHYROXINE. [Concomitant]
     Active Substance: LEVOTHYROXINE
     Dosage: 200 MICROGRAM
  4. METFORMIN HCL [Concomitant]
     Active Substance: METFORMIN HYDROCHLORIDE
     Dosage: 1000 G
  5. DOXAZOSIN MESILATE [Concomitant]
     Active Substance: DOXAZOSIN MESYLATE
     Dosage: 8 MILLIGRAM
  6. METHOTREXATE. [Concomitant]
     Active Substance: METHOTREXATE
     Dosage: 2.5 MILLIGRAM
  7. PRAVASTATIN. [Concomitant]
     Active Substance: PRAVASTATIN
     Dosage: 80 MILLIGRAM
  8. ELIQUIS [Concomitant]
     Active Substance: APIXABAN
     Dosage: 2.5 MILLIGRAM
  9. AMLODIPINE BESILATE [Concomitant]
     Active Substance: AMLODIPINE BESYLATE
     Dosage: 10-20 MG
  10. FLUTICASONE. [Concomitant]
     Active Substance: FLUTICASONE
     Dosage: UNK
  11. FOLIC ACID. [Concomitant]
     Active Substance: FOLIC ACID
     Dosage: 800 MICROGRAM
  12. LOSARTAN POTASSIUM. [Concomitant]
     Active Substance: LOSARTAN POTASSIUM
     Dosage: 100 MILLIGRAM
  13. ENBREL [Suspect]
     Active Substance: ETANERCEPT
     Indication: PSORIASIS
     Dosage: 50 MILLIGRAM, QWK
     Route: 058
  14. METHADON HCL [Concomitant]
     Active Substance: METHADONE HYDROCHLORIDE
     Dosage: 10 MILLIGRAM
  15. OXYBUTYNIN. [Concomitant]
     Active Substance: OXYBUTYNIN CHLORIDE
     Dosage: 5 MILLIGRAM

REACTIONS (2)
  - Influenza [Recovered/Resolved]
  - Pneumonia [Recovered/Resolved]
